FAERS Safety Report 4734753-X (Version None)
Quarter: 2005Q3

REPORT INFORMATION
  Report Type: 
  Country: None (occurrence: None)
  Receive Date: 20050804
  Receipt Date: 20050615
  Transmission Date: 20060218
  Serious: Yes (Other)
  Sender: FDA-Public Use
  Company Number: JP-GLAXOSMITHKLINE-B0384750A

PATIENT
  Age: 80 Year
  Sex: Male
  Weight: 43 kg

DRUGS (7)
  1. PAXIL [Suspect]
     Indication: DEPRESSION
     Route: 048
     Dates: start: 20050523
  2. CIBENOL [Suspect]
     Indication: CARDIAC FAILURE CHRONIC
     Dosage: 100MG TWICE PER DAY
     Route: 048
     Dates: start: 20050520, end: 20050602
  3. DIGOSIN [Concomitant]
     Indication: CARDIAC FAILURE CHRONIC
     Dosage: .125MG PER DAY
     Route: 048
     Dates: start: 20050520
  4. FUROSEMIDE [Concomitant]
     Indication: CARDIAC FAILURE CHRONIC
     Dosage: 20MG PER DAY
     Route: 048
     Dates: start: 20050520
  5. SLOW-K [Concomitant]
     Indication: CARDIAC FAILURE CHRONIC
     Dosage: 600MG PER DAY
     Route: 048
     Dates: start: 20050520
  6. WARFARIN SODIUM [Concomitant]
     Indication: CARDIAC FAILURE CHRONIC
     Dosage: 1.5MG PER DAY
     Route: 048
     Dates: start: 20050520
  7. SLOWHEIM [Concomitant]
     Indication: SENILE DEMENTIA
     Dosage: 10MG PER DAY
     Route: 048
     Dates: start: 20050517, end: 20050626

REACTIONS (6)
  - ATRIAL FIBRILLATION [None]
  - DRUG INTERACTION [None]
  - ELECTROCARDIOGRAM QRS COMPLEX PROLONGED [None]
  - PYREXIA [None]
  - URINARY TRACT INFECTION [None]
  - URINE ABNORMALITY [None]
